FAERS Safety Report 4424064-4 (Version None)
Quarter: 2004Q3

REPORT INFORMATION
  Report Type: 
  Country: None (occurrence: None)
  Receive Date: 20040806
  Receipt Date: 20040804
  Transmission Date: 20050211
  Serious: Yes (Disabling)
  Sender: FDA-Public Use
  Company Number: TCI2004A01742

PATIENT
  Age: 28 Year
  Sex: Female

DRUGS (5)
  1. LEUPLIN                (LEUPROLIDE ACETATE) (INJECTION) [Suspect]
     Indication: BREAST CANCER
     Dosage: 3.75 MG (3.75 MG, 1 IN 28 D)
     Route: 058
     Dates: start: 20040212, end: 20040101
  2. LEUPLIN                (LEUPROLIDE ACETATE) (INJECTION) [Suspect]
     Indication: BREAST OPERATION
     Dosage: 3.75 MG (3.75 MG, 1 IN 28 D)
     Route: 058
     Dates: start: 20040212, end: 20040101
  3. TAMOXIFEN CITRATE            (TABLETS) [Concomitant]
  4. DOXORUBICIN HYDROCHLORIDE [Concomitant]
  5. CYCLOPHOSPHAMIDE [Concomitant]

REACTIONS (8)
  - ARTHRALGIA [None]
  - BONE PAIN [None]
  - DIFFICULTY IN WALKING [None]
  - FATIGUE [None]
  - HYPOAESTHESIA [None]
  - PAIN [None]
  - PARAPLEGIA [None]
  - SENSORY DISTURBANCE [None]
